FAERS Safety Report 5612226-X (Version None)
Quarter: 2008Q1

REPORT INFORMATION
  Report Type: 
  Country: None (occurrence: None)
  Receive Date: 20080128
  Receipt Date: 20080117
  Transmission Date: 20080703
  Serious: Yes (Death, Hospitalization)
  Sender: FDA-Public Use
  Company Number: 2008000094

PATIENT
  Age: 58 Year
  Sex: Female

DRUGS (15)
  1. ERLOTINIB (ERLOTINIB HC1) (TABLET) (ERLOTINIB HC1) [Suspect]
     Indication: GASTROINTESTINAL CARCINOMA
     Dosage: 150 MG
     Dates: start: 20070910, end: 20071119
  2. BEVACIZUMAB (INJECTION FOR INFUSION) [Suspect]
     Dosage: 450 MG, Q2W, INTRAVENOUS
     Route: 042
     Dates: start: 20070910, end: 20071119
  3. CONTALGIN (MORPHINE SULFATE) [Concomitant]
  4. MORPHINE [Concomitant]
  5. MEGACE [Concomitant]
  6. PANTOPRAZOLE SODIUM [Concomitant]
  7. PRIMPERAN TAB [Concomitant]
  8. IMODIUM [Concomitant]
  9. PREDNISOLONE [Concomitant]
  10. BLOOD TRANSFUSION (BLOOD, WHOLE) [Concomitant]
  11. IBUPROFEN [Concomitant]
  12. MYCOSTATIN [Concomitant]
  13. IMOZOP (ZOPICLONE) [Concomitant]
  14. MOVICOL (NULYTELY) [Concomitant]
  15. PRIMPERAN TAB [Concomitant]

REACTIONS (26)
  - ABNORMAL CLOTTING FACTOR [None]
  - ALANINE AMINOTRANSFERASE INCREASED [None]
  - ANAEMIA [None]
  - BLOOD ALKALINE PHOSPHATASE INCREASED [None]
  - BLOOD BILIRUBIN INCREASED [None]
  - BLOOD CREATININE INCREASED [None]
  - BLOOD LACTATE DEHYDROGENASE INCREASED [None]
  - BLOOD UREA INCREASED [None]
  - C-REACTIVE PROTEIN INCREASED [None]
  - CONDITION AGGRAVATED [None]
  - CONVULSION [None]
  - DIZZINESS [None]
  - FEELING COLD [None]
  - GASTROINTESTINAL HAEMORRHAGE [None]
  - GENERAL PHYSICAL HEALTH DETERIORATION [None]
  - HYPERGLYCAEMIA [None]
  - IMPAIRED INSULIN SECRETION [None]
  - LIVER DISORDER [None]
  - MALAISE [None]
  - MULTI-ORGAN FAILURE [None]
  - NEOPLASM PROGRESSION [None]
  - NEUTROPHIL COUNT INCREASED [None]
  - PERIPHERAL ISCHAEMIA [None]
  - RENAL DISORDER [None]
  - TREMOR [None]
  - WHITE BLOOD CELL COUNT INCREASED [None]
